FAERS Safety Report 24352278 (Version 1)
Quarter: 2024Q3

REPORT INFORMATION
  Report Type: Spontaneous
  Country: US (occurrence: US)
  Receive Date: 20240923
  Receipt Date: 20240923
  Transmission Date: 20241017
  Serious: No
  Sender: PERRIGO
  Company Number: US-PERRIGO-24US007779

PATIENT

DRUGS (2)
  1. NASONEX [Suspect]
     Active Substance: MOMETASONE FUROATE
     Indication: Sinusitis
     Dosage: 100 MCG, SINGLE
     Route: 045
     Dates: start: 20240817, end: 20240817
  2. NASONEX [Suspect]
     Active Substance: MOMETASONE FUROATE
     Dosage: 100 MCG, BID
     Route: 045
     Dates: start: 20240818

REACTIONS (2)
  - Conjunctival irritation [Recovered/Resolved]
  - Off label use [Unknown]

NARRATIVE: CASE EVENT DATE: 20240817
